FAERS Safety Report 12998320 (Version 1)
Quarter: 2016Q4

REPORT INFORMATION
  Report Type: Spontaneous
  Country: US (occurrence: US)
  Receive Date: 20161203
  Receipt Date: 20161203
  Transmission Date: 20170207
  Serious: No
  Sender: FDA-Public Use
  Company Number: None

PATIENT
  Age: 64 Year
  Sex: Female
  Weight: 46.8 kg

DRUGS (1)
  1. SYSTANE NIGHTTIME [Suspect]
     Active Substance: MINERAL OIL\PETROLATUM
     Indication: DRY EYE
     Dosage: ?          QUANTITY:1 1;?
     Route: 047
     Dates: start: 20150501, end: 20161202

REACTIONS (2)
  - Product packaging issue [None]
  - Drug ineffective [None]

NARRATIVE: CASE EVENT DATE: 20161202
